FAERS Safety Report 24767282 (Version 1)
Quarter: 2024Q4

REPORT INFORMATION
  Report Type: Spontaneous
  Country: US (occurrence: None)
  Receive Date: 20241220
  Receipt Date: 20241220
  Transmission Date: 20250115
  Serious: Yes (Other)
  Sender: Public
  Company Number: None

PATIENT
  Sex: 0

DRUGS (1)
  1. MONISTAT 1 COMBINATION PACK [Suspect]
     Active Substance: MICONAZOLE NITRATE
     Dates: start: 20241219, end: 20241219

REACTIONS (6)
  - Vulvovaginal swelling [None]
  - Clitoral engorgement [None]
  - Application site swelling [None]
  - Dysuria [None]
  - Chemical burn [None]
  - Application site laceration [None]

NARRATIVE: CASE EVENT DATE: 20241220
